FAERS Safety Report 13412029 (Version 4)
Quarter: 2023Q2

REPORT INFORMATION
  Report Type: Spontaneous
  Country: US (occurrence: US)
  Receive Date: 20170406
  Receipt Date: 20230407
  Transmission Date: 20230722
  Serious: No
  Sender: FDA-Public Use
  Company Number: US-JNJFOC-20170314079

PATIENT
  Age: 23 Year
  Sex: Male

DRUGS (26)
  1. RISPERDAL [Suspect]
     Active Substance: RISPERIDONE
     Indication: Psychotic disorder
     Route: 048
     Dates: start: 20071226, end: 20130417
  2. RISPERDAL [Suspect]
     Active Substance: RISPERIDONE
     Route: 048
     Dates: start: 20071226
  3. RISPERDAL [Suspect]
     Active Substance: RISPERIDONE
     Route: 048
     Dates: start: 20080126
  4. RISPERDAL [Suspect]
     Active Substance: RISPERIDONE
     Route: 048
     Dates: start: 20080128, end: 20080225
  5. RISPERDAL [Suspect]
     Active Substance: RISPERIDONE
     Route: 048
     Dates: start: 20090906
  6. RISPERDAL [Suspect]
     Active Substance: RISPERIDONE
     Route: 048
     Dates: start: 20110309
  7. RISPERDAL [Suspect]
     Active Substance: RISPERIDONE
     Route: 048
     Dates: start: 20110316
  8. RISPERDAL [Suspect]
     Active Substance: RISPERIDONE
     Route: 048
     Dates: start: 20110622, end: 20110623
  9. RISPERDAL [Suspect]
     Active Substance: RISPERIDONE
     Route: 048
     Dates: start: 20121012
  10. RISPERDAL [Suspect]
     Active Substance: RISPERIDONE
     Route: 048
     Dates: start: 20130407, end: 20130416
  11. RISPERDAL [Suspect]
     Active Substance: RISPERIDONE
     Route: 048
     Dates: start: 20130417
  12. RISPERDAL [Suspect]
     Active Substance: RISPERIDONE
     Route: 048
     Dates: start: 20141202, end: 20141204
  13. RISPERDAL [Suspect]
     Active Substance: RISPERIDONE
     Route: 048
     Dates: start: 20141204
  14. RISPERDAL [Suspect]
     Active Substance: RISPERIDONE
     Route: 048
     Dates: start: 2000, end: 2017
  15. RISPERDAL [Suspect]
     Active Substance: RISPERIDONE
     Indication: Psychotic disorder
     Dosage: 2 MG EVERY MORNING AND 4 MG AT BEDTIME
     Route: 048
     Dates: start: 20100706
  16. RISPERDAL [Suspect]
     Active Substance: RISPERIDONE
     Route: 048
     Dates: start: 20101028
  17. RISPERDAL [Suspect]
     Active Substance: RISPERIDONE
     Route: 048
     Dates: start: 2000, end: 2017
  18. RISPERDAL CONSTA [Suspect]
     Active Substance: RISPERIDONE
     Indication: Psychotic disorder
     Route: 030
     Dates: start: 20091101, end: 20091110
  19. RISPERDAL CONSTA [Suspect]
     Active Substance: RISPERIDONE
     Route: 030
     Dates: start: 20101026, end: 20101028
  20. RISPERDAL CONSTA [Suspect]
     Active Substance: RISPERIDONE
     Route: 030
     Dates: start: 20130425
  21. RISPERDAL CONSTA [Suspect]
     Active Substance: RISPERIDONE
     Route: 030
     Dates: start: 2000, end: 2017
  22. RISPERIDONE [Suspect]
     Active Substance: RISPERIDONE
     Indication: Product used for unknown indication
     Route: 048
  23. RISPERIDONE [Suspect]
     Active Substance: RISPERIDONE
     Route: 048
     Dates: start: 20110316, end: 20141204
  24. HALDOL [Suspect]
     Active Substance: HALOPERIDOL
     Indication: Product used for unknown indication
     Route: 048
  25. RISPERIDONE [Suspect]
     Active Substance: RISPERIDONE
     Indication: Product used for unknown indication
     Route: 048
  26. ZYPREXA [Suspect]
     Active Substance: OLANZAPINE
     Indication: Product used for unknown indication
     Route: 065

REACTIONS (5)
  - Emotional distress [Unknown]
  - Gynaecomastia [Unknown]
  - Extrapyramidal disorder [Unknown]
  - Drug ineffective [Unknown]
  - Feeling abnormal [Unknown]

NARRATIVE: CASE EVENT DATE: 20080221
